FAERS Safety Report 7629376-9 (Version None)
Quarter: 2011Q3

REPORT INFORMATION
  Report Type: 
  Country: None (occurrence: None)
  Receive Date: 20110722
  Receipt Date: 20110712
  Transmission Date: 20111222
  Serious: Yes (Other)
  Sender: FDA-Public Use
  Company Number: US-JNJFOC-20110706035

PATIENT
  Age: 14 Year
  Sex: Female

DRUGS (4)
  1. REMICADE [Suspect]
     Route: 042
     Dates: start: 20100101
  2. STEROIDS NOS [Concomitant]
     Route: 047
  3. REMICADE [Suspect]
     Indication: UVEITIS
     Route: 042
     Dates: start: 20110626
  4. AZATHIOPRINE [Concomitant]
     Route: 065

REACTIONS (6)
  - DYSPNOEA [None]
  - ANAPHYLACTOID REACTION [None]
  - FOOD ALLERGY [None]
  - URTICARIA [None]
  - LIP SWELLING [None]
  - INFUSION RELATED REACTION [None]
